FAERS Safety Report 13081106 (Version 5)
Quarter: 2019Q1

REPORT INFORMATION
  Report Type: Spontaneous
  Country: DE (occurrence: DE)
  Receive Date: 20170103
  Receipt Date: 20190211
  Transmission Date: 20190417
  Serious: Yes (Hospitalization)
  Sender: FDA-Public Use
  Company Number: DE-JNJFOC-20161224658

PATIENT
  Age: 31 Year
  Sex: Female
  Weight: 111 kg

DRUGS (3)
  1. REMICADE [Suspect]
     Active Substance: INFLIXIMAB
     Indication: CROHN^S DISEASE
     Route: 042
     Dates: start: 20091201
  2. REMICADE [Suspect]
     Active Substance: INFLIXIMAB
     Indication: CROHN^S DISEASE
     Route: 042
     Dates: start: 201611
  3. REMICADE [Suspect]
     Active Substance: INFLIXIMAB
     Indication: CROHN^S DISEASE
     Route: 042
     Dates: start: 20091130

REACTIONS (5)
  - Large intestinal stenosis [Recovered/Resolved]
  - Diet failure [Unknown]
  - Cholelithiasis [Recovered/Resolved]
  - Ileostomy [Recovered/Resolved]
  - Obesity [Not Recovered/Not Resolved]

NARRATIVE: CASE EVENT DATE: 20151104
